FAERS Safety Report 23110002 (Version 1)
Quarter: 2023Q4

REPORT INFORMATION
  Report Type: Spontaneous
  Country: US (occurrence: US)
  Receive Date: 20231026
  Receipt Date: 20231026
  Transmission Date: 20240110
  Serious: Yes (Hospitalization, Other)
  Sender: FDA-Public Use
  Company Number: US-MLMSERVICE-20231005-4584062-1

PATIENT
  Age: 41 Year
  Sex: Male

DRUGS (1)
  1. METHOTREXATE [Suspect]
     Active Substance: METHOTREXATE
     Indication: Product used for unknown indication
     Dosage: 20 MILLIGRAM, SINGLE
     Route: 065

REACTIONS (10)
  - Bone marrow failure [Recovering/Resolving]
  - Pancytopenia [Recovering/Resolving]
  - Skin exfoliation [Unknown]
  - Renal failure [Unknown]
  - Klebsiella bacteraemia [Unknown]
  - Skin lesion [Unknown]
  - Neutropenic sepsis [Recovering/Resolving]
  - Endocarditis [Unknown]
  - Gingival bleeding [Unknown]
  - Oropharyngeal pain [Unknown]
